FAERS Safety Report 5871075-8 (Version None)
Quarter: 2008Q3

REPORT INFORMATION
  Report Type: 
  Country: None (occurrence: None)
  Receive Date: 20080904
  Receipt Date: 20080828
  Transmission Date: 20090109
  Serious: Yes (Other)
  Sender: FDA-Public Use
  Company Number: JP-PFIZER INC-2008072902

PATIENT
  Age: 72 Year
  Sex: Male

DRUGS (3)
  1. XALATAN [Suspect]
     Route: 047
  2. DISOPYRAMIDE [Concomitant]
     Route: 048
  3. RENIVACE [Concomitant]
     Route: 048

REACTIONS (2)
  - ARRHYTHMIA [None]
  - DIZZINESS [None]
